FAERS Safety Report 5263161-0 (Version None)
Quarter: 2007Q1

REPORT INFORMATION
  Report Type: 
  Country: None (occurrence: None)
  Receive Date: 20070312
  Receipt Date: 20070228
  Transmission Date: 20070707
  Serious: Yes (Other)
  Sender: FDA-Public Use
  Company Number: GB-PFIZER INC-2007016393

PATIENT
  Sex: Female

DRUGS (1)
  1. DEPO-PROVERA [Suspect]
     Dosage: FREQ:FIRST INJECTION
     Route: 030
     Dates: start: 20060901, end: 20060901

REACTIONS (1)
  - HYPOTHYROIDISM [None]
